FAERS Safety Report 4742115-4 (Version None)
Quarter: 2005Q3

REPORT INFORMATION
  Report Type: 
  Country: None (occurrence: None)
  Receive Date: 20050810
  Receipt Date: 20050810
  Transmission Date: 20060218
  Serious: Yes (Hospitalization)
  Sender: FDA-Public Use
  Company Number: None

PATIENT
  Age: 61 Year
  Sex: Male
  Weight: 85.2762 kg

DRUGS (8)
  1. ASPIRIN [Suspect]
     Indication: CEREBROVASCULAR ACCIDENT
     Dosage: 325 MG DAILY RENEWED 11/04-05/05/05
     Dates: start: 20041101, end: 20050505
  2. OMEPRAZOLE [Concomitant]
  3. METOPROLOL TARTRATE [Concomitant]
  4. SIMVASTATIN [Concomitant]
  5. ENALAPRIL MALEATE [Concomitant]
  6. MULTIVITAMIN/MINER (OCUVITE) [Concomitant]
  7. BISACODYL [Concomitant]
  8. SODIUM CHLORIDE 0.9% [Concomitant]

REACTIONS (5)
  - DIZZINESS [None]
  - DUODENAL ULCER [None]
  - GASTRIC ULCER [None]
  - HYPOTENSION [None]
  - VOMITING [None]
